FAERS Safety Report 5504878-X (Version None)
Quarter: 2007Q4

REPORT INFORMATION
  Report Type: 
  Country: None (occurrence: None)
  Receive Date: 20071031
  Receipt Date: 20071017
  Transmission Date: 20080405
  Serious: Yes (Hospitalization, Other)
  Sender: FDA-Public Use
  Company Number: 250228

PATIENT
  Age: 49 Year
  Sex: Female

DRUGS (1)
  1. ELESTRIN [Suspect]
     Indication: HORMONE REPLACEMENT THERAPY
     Dosage: 1 METERED DOSE TO SKIN QD
     Dates: start: 20070815, end: 20070829

REACTIONS (9)
  - BLOOD PRESSURE INCREASED [None]
  - CONVULSION [None]
  - FEELING ABNORMAL [None]
  - HEADACHE [None]
  - HYPOAESTHESIA [None]
  - ILL-DEFINED DISORDER [None]
  - MIGRAINE [None]
  - PARAESTHESIA [None]
  - STUPOR [None]
